FAERS Safety Report 9540210 (Version 2)
Quarter: 2013Q4

REPORT INFORMATION
  Report Type: Report from Study
  Country: ES (occurrence: ES)
  Receive Date: 20130920
  Receipt Date: 20131017
  Transmission Date: 20140711
  Serious: Yes (Other)
  Sender: FDA-Public Use
  Company Number: ES-BRISTOL-MYERS SQUIBB COMPANY-19402361

PATIENT
  Age: 60 Year
  Sex: Male

DRUGS (5)
  1. ORENCIA [Suspect]
     Indication: RHEUMATOID ARTHRITIS
     Route: 042
     Dates: start: 20130402
  2. METOJECT [Concomitant]
  3. ACFOL [Concomitant]
  4. SALAZOPYRINE [Concomitant]
  5. URBASON [Concomitant]

REACTIONS (1)
  - Musculoskeletal pain [Unknown]
